FAERS Safety Report 7010461-X (Version None)
Quarter: 2010Q3

REPORT INFORMATION
  Report Type: 
  Country: None (occurrence: None)
  Receive Date: 20100923
  Receipt Date: 20100917
  Transmission Date: 20110219
  Serious: Yes (Other)
  Sender: FDA-Public Use
  Company Number: PHHY2010CA55010

PATIENT
  Sex: Female

DRUGS (1)
  1. FEMARA [Suspect]
     Indication: BREAST CANCER
     Dosage: 2.5 MG, QD
     Route: 048
     Dates: start: 20080722

REACTIONS (6)
  - BLISTER [None]
  - DRY SKIN [None]
  - LICHEN SCLEROSUS [None]
  - RASH [None]
  - SKIN HYPERTROPHY [None]
  - SKIN LESION [None]
